FAERS Safety Report 5933648-3 (Version None)
Quarter: 2008Q4

REPORT INFORMATION
  Report Type: 
  Country: None (occurrence: None)
  Receive Date: 20081024
  Receipt Date: 20081013
  Transmission Date: 20090506
  Serious: Yes (Hospitalization)
  Sender: FDA-Public Use
  Company Number: 2008MB000105

PATIENT
  Sex: Male

DRUGS (1)
  1. KEFLEX [Suspect]
     Indication: PHARYNGOTONSILLITIS
     Dosage: 500 MG;Q8H
     Dates: start: 20080101, end: 20080101

REACTIONS (2)
  - ANAEMIA [None]
  - CHOLECYSTITIS [None]
